FAERS Safety Report 9251802 (Version 1)
Quarter: 2013Q2

REPORT INFORMATION
  Report Type: Spontaneous
  Country: US (occurrence: US)
  Receive Date: 20130424
  Receipt Date: 20130424
  Transmission Date: 20140414
  Serious: No
  Sender: FDA-Public Use
  Company Number: US-BAYER-2013-048716

PATIENT
  Age: 80 Year
  Sex: Male
  Weight: 70.3 kg

DRUGS (2)
  1. ALEVE CAPLET [Suspect]
     Indication: ARTHRITIS
     Dosage: 1 DF, ONCE
     Route: 048
     Dates: start: 20130411, end: 20130411
  2. ASPIRIN [Concomitant]

REACTIONS (2)
  - Dysstasia [Not Recovered/Not Resolved]
  - Drug ineffective [None]
